FAERS Safety Report 8322866-5 (Version None)
Quarter: 2012Q2

REPORT INFORMATION
  Report Type: 
  Country: None (occurrence: None)
  Receive Date: 20120430
  Receipt Date: 20110314
  Transmission Date: 20120825
  Serious: Yes (Other)
  Sender: FDA-Public Use
  Company Number: US-TEVA-2011001180

PATIENT
  Sex: Female
  Weight: 79.45 kg

DRUGS (8)
  1. PROVIGIL [Suspect]
     Indication: FATIGUE
     Route: 048
     Dates: start: 20090101, end: 20090701
  2. NEURONTIN [Concomitant]
     Dates: start: 20090101
  3. HYDROCODONE [Concomitant]
     Dates: start: 19990101
  4. BACTRIM [Concomitant]
     Dates: start: 19990101
  5. BETASERON [Concomitant]
     Dates: start: 19990501, end: 20100701
  6. REGLAN [Concomitant]
     Dates: start: 20040101, end: 20091201
  7. SEROQUEL [Concomitant]
     Dates: start: 20040101, end: 20090101
  8. PRILOSEC [Concomitant]
     Dates: start: 20090101

REACTIONS (3)
  - IMPULSIVE BEHAVIOUR [None]
  - MOOD SWINGS [None]
  - ANGER [None]
